FAERS Safety Report 5797866-X (Version None)
Quarter: 2008Q2

REPORT INFORMATION
  Report Type: 
  Country: None (occurrence: None)
  Receive Date: 20080630
  Receipt Date: 20080613
  Transmission Date: 20081010
  Serious: Yes (Death, Hospitalization)
  Sender: FDA-Public Use
  Company Number: 2008001417

PATIENT
  Age: 74 Year
  Sex: Male

DRUGS (3)
  1. TARCEVA [Suspect]
     Indication: NON-SMALL CELL LUNG CANCER
     Dosage: (150 MG,QD), ORAL
     Route: 048
     Dates: start: 20061101
  2. DEXAMETHASONE TAB [Concomitant]
  3. H2-RECEPTOR INHIBITOR [Concomitant]

REACTIONS (7)
  - DEHYDRATION [None]
  - DIARRHOEA [None]
  - DYSPNOEA [None]
  - ELECTROLYTE IMBALANCE [None]
  - HYPOVOLAEMIC SHOCK [None]
  - RASH [None]
  - SPINAL CORD COMPRESSION [None]
